FAERS Safety Report 14352203 (Version 1)
Quarter: 2018Q1

REPORT INFORMATION
  Report Type: Spontaneous
  Country: US (occurrence: US)
  Receive Date: 20180104
  Receipt Date: 20180104
  Transmission Date: 20180509
  Serious: No
  Sender: FDA-Public Use
  Company Number: US-ALLERGAN-1732020US

PATIENT
  Sex: Female

DRUGS (2)
  1. ACZONE [Suspect]
     Active Substance: DAPSONE
     Indication: ACNE CYSTIC
     Dosage: UNK
     Route: 061
  2. ACANYA [Suspect]
     Active Substance: BENZOYL PEROXIDE\CLINDAMYCIN PHOSPHATE
     Indication: ACNE CYSTIC
     Dosage: UNK UNK, QHS
     Route: 061
     Dates: end: 201706

REACTIONS (3)
  - Acne cystic [Not Recovered/Not Resolved]
  - Facial pain [Not Recovered/Not Resolved]
  - Inappropriate schedule of drug administration [Unknown]
